FAERS Safety Report 4697664-4 (Version None)
Quarter: 2005Q2

REPORT INFORMATION
  Report Type: 
  Country: None (occurrence: None)
  Receive Date: 20050622
  Receipt Date: 20050607
  Transmission Date: 20051028
  Serious: Yes (Death)
  Sender: FDA-Public Use
  Company Number: USA050393136

PATIENT
  Sex: Female
  Weight: 75 kg

DRUGS (12)
  1. CYMBALTA [Suspect]
     Indication: DEPRESSION
     Dosage: 60 MG DAY
  2. METFORMIN [Concomitant]
  3. DIGOXIN [Concomitant]
  4. ESGIC-PLUS [Concomitant]
  5. FLERXERIL (CYCLOBENZAPRINE HYDROCHLORIDE) [Concomitant]
  6. GEMFIBROZIL [Concomitant]
  7. WARFARIN [Concomitant]
  8. MODURETIC 5-50 [Concomitant]
  9. TRAZODONE HCL [Concomitant]
  10. LORAZEPAM [Concomitant]
  11. ALEVE [Concomitant]
  12. KCL (POTASSIUM CHLORIDE) [Concomitant]

REACTIONS (1)
  - DEATH [None]
